FAERS Safety Report 10055033 (Version 2)
Quarter: 2014Q2

REPORT INFORMATION
  Report Type: Spontaneous
  Country: US (occurrence: US)
  Receive Date: 20140402
  Receipt Date: 20140613
  Transmission Date: 20141212
  Serious: Yes (Other)
  Sender: FDA-Public Use
  Company Number: US-SA-2014SA029972

PATIENT
  Age: 38 Year
  Sex: Female

DRUGS (1)
  1. AUBAGIO [Suspect]
     Indication: MULTIPLE SCLEROSIS
     Route: 065
     Dates: start: 201308, end: 20140204

REACTIONS (2)
  - Central nervous system lesion [Not Recovered/Not Resolved]
  - Nuclear magnetic resonance imaging abnormal [Unknown]
